FAERS Safety Report 4582384-7 (Version None)
Quarter: 2005Q1

REPORT INFORMATION
  Report Type: 
  Country: None (occurrence: None)
  Receive Date: 20050119
  Receipt Date: 20040311
  Transmission Date: 20050727
  Serious: Yes (Death)
  Sender: FDA-Public Use
  Company Number: US-JNJFOC-20040102654

PATIENT
  Age: 51 Year
  Sex: Female

DRUGS (2)
  1. DOXIL [Suspect]
     Indication: OVARIAN CANCER
     Dosage: X3 CYCLES
     Dates: end: 20031027
  2. PROCRIT (ERYTHROPOIETIN) INJECTION [Suspect]
     Indication: ANAEMIA OF MALIGNANT DISEASE
     Dosage: 3000 IU, 1 IN 1 WEEK
     Dates: end: 20031001

REACTIONS (1)
  - OVARIAN CANCER [None]
